FAERS Safety Report 8803309 (Version 4)
Quarter: 2013Q1

REPORT INFORMATION
  Report Type: Report from Study
  Country: CA (occurrence: CA)
  Receive Date: 20120924
  Receipt Date: 20130206
  Transmission Date: 20140127
  Serious: Yes (Death, Hospitalization, Other)
  Sender: FDA-Public Use
  Company Number: CA-CELGENEUS-028-21880-12092393

PATIENT
  Age: 75 Year
  Sex: Female

DRUGS (47)
  1. REVLIMID [Suspect]
     Indication: PLASMA CELL MYELOMA
     Dosage: 10 MILLIGRAM
     Route: 048
     Dates: start: 20120404, end: 20120415
  2. ELOTUZUMAB [Suspect]
     Indication: PLASMA CELL MYELOMA
     Dosage: 496 MILLIGRAM
     Route: 041
     Dates: start: 20120404, end: 20120411
  3. DEXAMETHASONE [Suspect]
     Indication: PLASMA CELL MYELOMA
     Dosage: 28 MILLIGRAM
     Route: 048
     Dates: start: 20120404, end: 20120410
  4. DEXAMETHASONE [Suspect]
     Dosage: 8 MILLIGRAM
     Route: 041
     Dates: start: 20120404, end: 20120411
  5. K-DUR [Concomitant]
     Indication: PRODUCT USED FOR UNKNOWN INDICATION
     Route: 065
     Dates: start: 20120327, end: 20120403
  6. ZINC [Concomitant]
     Indication: PRODUCT USED FOR UNKNOWN INDICATION
     Route: 065
     Dates: start: 20120402, end: 20120410
  7. PRBC [Concomitant]
     Indication: ADVERSE EVENT
     Route: 041
     Dates: start: 20120411, end: 20120411
  8. PRBC [Concomitant]
     Route: 041
     Dates: start: 20120412, end: 20120412
  9. SUPRAX [Concomitant]
     Indication: PRODUCT USED FOR UNKNOWN INDICATION
     Route: 065
     Dates: start: 20120409, end: 20120410
  10. AMOXIL [Concomitant]
     Indication: PRODUCT USED FOR UNKNOWN INDICATION
     Route: 065
     Dates: start: 20120407, end: 20120409
  11. DULCOLAX [Concomitant]
     Indication: PRODUCT USED FOR UNKNOWN INDICATION
     Route: 065
     Dates: start: 20120401, end: 20120401
  12. TAMIFLU [Concomitant]
     Indication: PRODUCT USED FOR UNKNOWN INDICATION
     Route: 065
     Dates: start: 20120329, end: 20120330
  13. DILAUDID [Concomitant]
     Indication: ADVERSE EVENT
     Route: 065
     Dates: start: 20120419, end: 20120422
  14. IPRATROPIUM [Concomitant]
     Indication: PRODUCT USED FOR UNKNOWN INDICATION
     Route: 065
     Dates: start: 20120421, end: 20120422
  15. ATROVENT [Concomitant]
     Indication: ADVERSE EVENT
     Route: 065
     Dates: start: 20120419, end: 20120419
  16. VENTOLIN [Concomitant]
     Indication: ADVERSE EVENT
     Route: 065
     Dates: start: 20120417, end: 20120422
  17. LASIX [Concomitant]
     Indication: ADVERSE EVENT
     Route: 065
     Dates: start: 20120419, end: 20120419
  18. BISACODYL [Concomitant]
     Indication: PRODUCT USED FOR UNKNOWN INDICATION
     Route: 065
     Dates: start: 20120417, end: 20120417
  19. PIP/TAZ [Concomitant]
     Indication: ADVERSE EVENT
     Route: 065
     Dates: start: 20120416, end: 20120422
  20. MORPHINE [Concomitant]
     Indication: ADVERSE EVENT
     Dosage: 5 MILLIGRAM
     Route: 065
     Dates: start: 20120413, end: 20120415
  21. MORPHINE [Concomitant]
     Dosage: 2.5 MILLIGRAM
     Route: 065
     Dates: start: 20120413, end: 20120421
  22. MORPHINE [Concomitant]
     Route: 065
     Dates: start: 20120415, end: 20120422
  23. MGSO4 [Concomitant]
     Indication: ADVERSE EVENT
     Route: 065
     Dates: start: 20120415, end: 20120415
  24. HALDOL [Concomitant]
     Indication: ADVERSE EVENT
     Route: 065
     Dates: start: 20120413, end: 20120421
  25. NYSTATIN [Concomitant]
     Indication: PRODUCT USED FOR UNKNOWN INDICATION
     Route: 065
     Dates: start: 20120413, end: 20120413
  26. KCL [Concomitant]
     Indication: ADVERSE EVENT
     Route: 065
     Dates: start: 20120412, end: 20120416
  27. ALLOPURINOL [Concomitant]
     Indication: ADVERSE EVENT
     Route: 065
     Dates: start: 20120411, end: 20120416
  28. FLUCONAZOLE [Concomitant]
     Indication: PRODUCT USED FOR UNKNOWN INDICATION
     Route: 065
     Dates: start: 20120411, end: 20120422
  29. CCI MOUTHWASH [Concomitant]
     Indication: ADVERSE EVENT
     Route: 065
     Dates: start: 20120411, end: 20120422
  30. NORMAL SALINE [Concomitant]
     Indication: PRODUCT USED FOR UNKNOWN INDICATION
     Route: 065
     Dates: start: 20120324, end: 20120422
  31. CIPROFLOXACIN [Concomitant]
     Indication: PRODUCT USED FOR UNKNOWN INDICATION
     Route: 065
     Dates: start: 20120410, end: 20120412
  32. TYLENOL [Concomitant]
     Indication: PRODUCT USED FOR UNKNOWN INDICATION
     Route: 065
     Dates: start: 20120324, end: 20120422
  33. HYDROMORPHONE [Concomitant]
     Indication: PRODUCT USED FOR UNKNOWN INDICATION
     Route: 065
     Dates: start: 20110201, end: 20120324
  34. HYDROMORPHONE [Concomitant]
     Route: 065
     Dates: start: 20110201, end: 20120422
  35. HYDROMORPHONE [Concomitant]
     Route: 065
     Dates: start: 20120325, end: 20120422
  36. LEVOTHYROXINE [Concomitant]
     Indication: PRODUCT USED FOR UNKNOWN INDICATION
     Route: 065
     Dates: start: 20120324, end: 20120411
  37. METOCLOPRAMIDE [Concomitant]
     Indication: PRODUCT USED FOR UNKNOWN INDICATION
     Route: 065
     Dates: start: 20120324, end: 20120413
  38. ENOXAPARIN [Concomitant]
     Indication: PRODUCT USED FOR UNKNOWN INDICATION
     Route: 065
     Dates: start: 20120324, end: 20120422
  39. IMOVANE [Concomitant]
     Indication: PRODUCT USED FOR UNKNOWN INDICATION
     Route: 065
     Dates: start: 20090301, end: 20120417
  40. ESSENTIAL FATTY ACIDS [Concomitant]
     Indication: PRODUCT USED FOR UNKNOWN INDICATION
     Route: 065
     Dates: start: 20100101, end: 20120324
  41. SENNA [Concomitant]
     Indication: PRODUCT USED FOR UNKNOWN INDICATION
     Route: 065
     Dates: start: 20120325
  42. DOCUSATE SODIUM [Concomitant]
     Indication: PRODUCT USED FOR UNKNOWN INDICATION
     Route: 065
     Dates: start: 20120325
  43. VALSARTAN [Concomitant]
     Indication: PRODUCT USED FOR UNKNOWN INDICATION
     Route: 065
     Dates: start: 20120325
  44. OSELTAMIVIR [Concomitant]
     Indication: PRODUCT USED FOR UNKNOWN INDICATION
     Route: 065
     Dates: start: 20120324, end: 20120405
  45. POTASSIUM CHLORIDE [Concomitant]
     Indication: PRODUCT USED FOR UNKNOWN INDICATION
     Route: 065
     Dates: start: 20120327
  46. MAGNESIUM [Concomitant]
     Indication: PRODUCT USED FOR UNKNOWN INDICATION
     Route: 065
     Dates: start: 20100101, end: 20120324
  47. VITAMIN D [Concomitant]
     Indication: PRODUCT USED FOR UNKNOWN INDICATION
     Route: 065
     Dates: start: 20100101, end: 20120301

REACTIONS (2)
  - Pneumonia [Fatal]
  - Pelvic fracture [Recovered/Resolved]
